FAERS Safety Report 25075519 (Version 1)
Quarter: 2025Q1

REPORT INFORMATION
  Report Type: Report from Study
  Country: CO (occurrence: CO)
  Receive Date: 20250313
  Receipt Date: 20250313
  Transmission Date: 20250409
  Serious: Yes (Death, Other)
  Sender: UCB
  Company Number: CO-UCBSA-2025014312

PATIENT
  Age: 72 Year
  Sex: Male

DRUGS (2)
  1. ROTIGOTINE [Suspect]
     Active Substance: ROTIGOTINE
     Indication: Parkinson^s disease
     Dosage: 8 MILLIGRAM, ONCE DAILY (QD)
     Route: 062
     Dates: start: 20221005, end: 20240728
  2. ROTIGOTINE [Suspect]
     Active Substance: ROTIGOTINE
     Dosage: 10 MILLIGRAM, ONCE DAILY (QD) (PATIENT USED 4 MILLIGRAM AND 6 MILLIGRAM PATCHES)
     Route: 062
     Dates: start: 20240729, end: 20250215

REACTIONS (2)
  - Death [Fatal]
  - Off label use [Unknown]

NARRATIVE: CASE EVENT DATE: 20240729
